FAERS Safety Report 21254750 (Version 1)
Quarter: 2022Q3

REPORT INFORMATION
  Report Type: Spontaneous
  Country: US (occurrence: US)
  Receive Date: 20220825
  Receipt Date: 20220825
  Transmission Date: 20221027
  Serious: No
  Sender: FDA-Public Use
  Company Number: US-BIOMARINAP-US-2022-144797

PATIENT

DRUGS (1)
  1. VOXZOGO [Suspect]
     Active Substance: VOSORITIDE
     Indication: Osteochondrodysplasia
     Dosage: 0.25 MILLILITER, QD
     Route: 058
     Dates: start: 20220617

REACTIONS (4)
  - Pyrexia [Unknown]
  - Night sweats [Unknown]
  - Nasal congestion [Unknown]
  - Thirst [Unknown]

NARRATIVE: CASE EVENT DATE: 20220701
